FAERS Safety Report 4909262-5 (Version None)
Quarter: 2006Q1

REPORT INFORMATION
  Report Type: 
  Country: None (occurrence: None)
  Receive Date: 20060213
  Receipt Date: 20060201
  Transmission Date: 20060701
  Serious: Yes (Other)
  Sender: FDA-Public Use
  Company Number: PHRM2006FR00680

PATIENT
  Age: 38 Year
  Sex: Female

DRUGS (3)
  1. TEGRETOL [Suspect]
     Indication: EPILEPSY
     Dosage: 800 MG/DAY
     Route: 048
     Dates: start: 19910101
  2. LAMICTAL [Suspect]
     Dosage: 400 MG/DAY
     Route: 048
     Dates: start: 19980101
  3. EPITOMAX [Suspect]
     Route: 048
     Dates: start: 20020101

REACTIONS (1)
  - TEETH BRITTLE [None]
